FAERS Safety Report 9927560 (Version 3)
Quarter: 2014Q2

REPORT INFORMATION
  Report Type: Report from Study
  Country: US (occurrence: US)
  Receive Date: 20140227
  Receipt Date: 20140602
  Transmission Date: 20141212
  Serious: Yes (Death, Other)
  Sender: FDA-Public Use
  Company Number: US-BIOGENIDEC-2014BI016913

PATIENT
  Sex: Female

DRUGS (15)
  1. TYSABRI [Suspect]
     Indication: MULTIPLE SCLEROSIS
     Route: 042
     Dates: start: 20061117, end: 20130308
  2. ERYTHROPOIETIN [Concomitant]
  3. ZEMPLAR [Concomitant]
  4. NITROFURANTOIN [Concomitant]
  5. VITAMIN D [Concomitant]
  6. XANAX [Concomitant]
  7. PROVIGIL [Concomitant]
  8. VENOFER [Concomitant]
  9. COLACE [Concomitant]
  10. AMLODIPINE [Concomitant]
  11. WELLBUTRIN [Concomitant]
  12. METOPROLOL [Concomitant]
  13. ZANAFLEX [Concomitant]
  14. ESTRACE [Concomitant]
  15. NEPHROCAPS [Concomitant]

REACTIONS (3)
  - Hepatic cancer metastatic [Fatal]
  - Pneumonia [Unknown]
  - Renal failure [Unknown]
